FAERS Safety Report 16709592 (Version 5)
Quarter: 2020Q1

REPORT INFORMATION
  Report Type: Report from Study
  Country: CA (occurrence: CA)
  Receive Date: 20190816
  Receipt Date: 20200116
  Transmission Date: 20200409
  Serious: Yes (Other)
  Sender: FDA-Public Use
  Company Number: CA-AMGEN-CANSL2019108256

PATIENT
  Age: 70 Year
  Sex: Female

DRUGS (9)
  1. PLAVIX [Concomitant]
     Active Substance: CLOPIDOGREL BISULFATE
  2. REPATHA [Suspect]
     Active Substance: EVOLOCUMAB
     Indication: HYPERCHOLESTEROLAEMIA
     Dosage: 140 MILLIGRAM PER MILLILITRE, QMO
     Route: 058
     Dates: start: 20190430, end: 20190615
  3. REPATHA [Suspect]
     Active Substance: EVOLOCUMAB
     Indication: DYSLIPIDAEMIA
  4. SOLUCAL D [Concomitant]
     Dosage: UNK
  5. REPATHA [Suspect]
     Active Substance: EVOLOCUMAB
     Indication: ARTERIOSCLEROSIS
     Dosage: 140 MILLIGRAM PER MILLILITRE
     Route: 065
     Dates: start: 20190518
  6. REPATHA [Suspect]
     Active Substance: EVOLOCUMAB
     Indication: HYPERLIPIDAEMIA
     Dosage: 140 MILLIGRAM PER MILLILITRE, Q2WK
     Route: 065
     Dates: start: 201908
  7. PROLIA [Suspect]
     Active Substance: DENOSUMAB
     Indication: OSTEOPOROSIS POSTMENOPAUSAL
     Dosage: 60 MILLIGRAM, Q6MO
     Route: 058
     Dates: start: 20170511, end: 2018
  8. BIOTIN [Concomitant]
     Active Substance: BIOTIN
     Dosage: UNK
  9. INDERAL [Concomitant]
     Active Substance: PROPRANOLOL HYDROCHLORIDE
     Dosage: UNK

REACTIONS (5)
  - Rash pruritic [Not Recovered/Not Resolved]
  - Rash macular [Not Recovered/Not Resolved]
  - Alopecia [Not Recovered/Not Resolved]
  - Pruritus [Not Recovered/Not Resolved]
  - Acne [Not Recovered/Not Resolved]

NARRATIVE: CASE EVENT DATE: 20180410
